FAERS Safety Report 24591416 (Version 2)
Quarter: 2024Q4

REPORT INFORMATION
  Report Type: Spontaneous
  Country: CA (occurrence: CA)
  Receive Date: 20241108
  Receipt Date: 20241129
  Transmission Date: 20250115
  Serious: Yes (Hospitalization, Other)
  Sender: Haleon PLC
  Company Number: CA-002147023-NVSC2024CA108311

PATIENT
  Age: 75 Year
  Sex: Female
  Weight: 70 kg

DRUGS (69)
  1. CHOLECALCIFEROL [Suspect]
     Active Substance: CHOLECALCIFEROL
     Indication: Product used for unknown indication
  2. CHOLECALCIFEROL [Suspect]
     Active Substance: CHOLECALCIFEROL
  3. CHOLECALCIFEROL [Suspect]
     Active Substance: CHOLECALCIFEROL
  4. CHOLECALCIFEROL [Suspect]
     Active Substance: CHOLECALCIFEROL
  5. PREGABALIN [Suspect]
     Active Substance: PREGABALIN
     Indication: Arthralgia
  6. PREGABALIN [Suspect]
     Active Substance: PREGABALIN
  7. PREGABALIN [Suspect]
     Active Substance: PREGABALIN
  8. NAPROXEN SODIUM [Concomitant]
     Active Substance: NAPROXEN SODIUM
     Indication: Product used for unknown indication
  9. AMOXICILLIN [Concomitant]
     Active Substance: AMOXICILLIN
     Indication: Product used for unknown indication
  10. ATORVASTATIN CALCIUM [Suspect]
     Active Substance: ATORVASTATIN CALCIUM
     Indication: Dyslipidaemia
  11. ATORVASTATIN CALCIUM [Suspect]
     Active Substance: ATORVASTATIN CALCIUM
     Indication: Product used for unknown indication
  12. CHOLECALCIFEROL [Concomitant]
     Active Substance: CHOLECALCIFEROL
     Indication: Product used for unknown indication
  13. IBUPROFEN [Suspect]
     Active Substance: IBUPROFEN
     Indication: Arthralgia
  14. IBUPROFEN [Suspect]
     Active Substance: IBUPROFEN
     Indication: Product used for unknown indication
  15. GABAPENTIN [Suspect]
     Active Substance: GABAPENTIN
     Indication: Arthralgia
  16. GABAPENTIN [Suspect]
     Active Substance: GABAPENTIN
  17. PYRIDOXINE HYDROCHLORIDE [Concomitant]
     Active Substance: PYRIDOXINE HYDROCHLORIDE
     Indication: Product used for unknown indication
  18. NAPROXEN [Suspect]
     Active Substance: NAPROXEN
     Indication: Arthralgia
  19. DICLOFENAC [Concomitant]
     Active Substance: DICLOFENAC
     Indication: Product used for unknown indication
  20. ESTRADIOL [Suspect]
     Active Substance: ESTRADIOL
     Indication: Product used for unknown indication
     Route: 062
  21. ESTRADIOL [Suspect]
     Active Substance: ESTRADIOL
  22. LATANOPROST [Suspect]
     Active Substance: LATANOPROST
     Indication: Glaucoma
     Route: 047
  23. LATANOPROST [Suspect]
     Active Substance: LATANOPROST
     Route: 047
  24. LATANOPROST [Suspect]
     Active Substance: LATANOPROST
     Route: 047
  25. LATANOPROST [Suspect]
     Active Substance: LATANOPROST
     Route: 047
  26. LATANOPROST [Suspect]
     Active Substance: LATANOPROST
     Route: 047
  27. BRINZOLAMIDE\TIMOLOL MALEATE [Suspect]
     Active Substance: BRINZOLAMIDE\TIMOLOL MALEATE
     Indication: Glaucoma
     Route: 047
  28. BRINZOLAMIDE\TIMOLOL MALEATE [Suspect]
     Active Substance: BRINZOLAMIDE\TIMOLOL MALEATE
     Route: 065
  29. BRINZOLAMIDE\TIMOLOL MALEATE [Suspect]
     Active Substance: BRINZOLAMIDE\TIMOLOL MALEATE
     Route: 047
  30. BRINZOLAMIDE\TIMOLOL MALEATE [Suspect]
     Active Substance: BRINZOLAMIDE\TIMOLOL MALEATE
     Route: 047
  31. BRINZOLAMIDE\TIMOLOL MALEATE [Suspect]
     Active Substance: BRINZOLAMIDE\TIMOLOL MALEATE
  32. BRINZOLAMIDE\TIMOLOL MALEATE [Suspect]
     Active Substance: BRINZOLAMIDE\TIMOLOL MALEATE
  33. BRINZOLAMIDE\TIMOLOL MALEATE [Suspect]
     Active Substance: BRINZOLAMIDE\TIMOLOL MALEATE
     Route: 047
  34. ACETAMINOPHEN [Concomitant]
     Active Substance: ACETAMINOPHEN
     Indication: Product used for unknown indication
  35. ACETAMINOPHEN [Concomitant]
     Active Substance: ACETAMINOPHEN
     Indication: Product used for unknown indication
  36. ESTRADIOL [Suspect]
     Active Substance: ESTRADIOL
     Indication: Menopausal symptoms
  37. ESTRADIOL [Suspect]
     Active Substance: ESTRADIOL
  38. ESTRADIOL [Suspect]
     Active Substance: ESTRADIOL
  39. ATORVASTATIN CALCIUM [Concomitant]
     Active Substance: ATORVASTATIN CALCIUM
     Indication: Product used for unknown indication
  40. DICLOFENAC SODIUM [Suspect]
     Active Substance: DICLOFENAC SODIUM
     Indication: Arthralgia
  41. AMOXICILLIN [Suspect]
     Active Substance: AMOXICILLIN
     Indication: Sinusitis
  42. ACETAMINOPHEN [Suspect]
     Active Substance: ACETAMINOPHEN
     Indication: Product used for unknown indication
  43. ACETAMINOPHEN [Suspect]
     Active Substance: ACETAMINOPHEN
  44. ACETAMINOPHEN [Suspect]
     Active Substance: ACETAMINOPHEN
  45. ACETAMINOPHEN [Suspect]
     Active Substance: ACETAMINOPHEN
  46. ACETAMINOPHEN [Suspect]
     Active Substance: ACETAMINOPHEN
  47. PYRIDOXINE HYDROCHLORIDE [Suspect]
     Active Substance: PYRIDOXINE HYDROCHLORIDE
     Indication: Product used for unknown indication
  48. PYRIDOXINE HYDROCHLORIDE [Suspect]
     Active Substance: PYRIDOXINE HYDROCHLORIDE
  49. PYRIDOXINE HYDROCHLORIDE [Suspect]
     Active Substance: PYRIDOXINE HYDROCHLORIDE
  50. PYRIDOXINE HYDROCHLORIDE [Suspect]
     Active Substance: PYRIDOXINE HYDROCHLORIDE
  51. IPRATROPIUM [Suspect]
     Active Substance: IPRATROPIUM
     Indication: Rhinitis
     Route: 045
  52. IPRATROPIUM [Suspect]
     Active Substance: IPRATROPIUM
     Route: 045
  53. IPRATROPIUM [Suspect]
     Active Substance: IPRATROPIUM
  54. IPRATROPIUM [Suspect]
     Active Substance: IPRATROPIUM
     Route: 045
  55. IPRATROPIUM [Suspect]
     Active Substance: IPRATROPIUM
  56. IPRATROPIUM [Suspect]
     Active Substance: IPRATROPIUM
     Route: 045
  57. IPRATROPIUM [Suspect]
     Active Substance: IPRATROPIUM
     Route: 045
  58. IPRATROPIUM [Suspect]
     Active Substance: IPRATROPIUM
     Route: 045
  59. PYRIDOXINE [Suspect]
     Active Substance: PYRIDOXINE
     Indication: Product used for unknown indication
  60. CLONAZEPAM [Suspect]
     Active Substance: CLONAZEPAM
     Indication: Product use in unapproved indication
  61. CLONAZEPAM [Suspect]
     Active Substance: CLONAZEPAM
  62. CLONAZEPAM [Suspect]
     Active Substance: CLONAZEPAM
  63. TELMISARTAN [Suspect]
     Active Substance: TELMISARTAN
     Indication: Hypertension
  64. TELMISARTAN [Suspect]
     Active Substance: TELMISARTAN
  65. TELMISARTAN [Suspect]
     Active Substance: TELMISARTAN
  66. PREGABALIN [Suspect]
     Active Substance: PREGABALIN
     Indication: Arthralgia
  67. ZOPICLONE [Suspect]
     Active Substance: ZOPICLONE
     Indication: Insomnia
  68. ZOPICLONE [Suspect]
     Active Substance: ZOPICLONE
  69. ZOPICLONE [Suspect]
     Active Substance: ZOPICLONE

REACTIONS (8)
  - Epidermal necrosis [Recovered/Resolved]
  - Off label use [Recovered/Resolved]
  - Nikolsky^s sign positive [Recovered/Resolved]
  - Haemoglobin decreased [Recovered/Resolved]
  - Toxic epidermal necrolysis [Recovered/Resolved]
  - Product use in unapproved indication [Recovered/Resolved]
  - Rash erythematous [Recovered/Resolved]
  - Rash papular [Recovered/Resolved]
